FAERS Safety Report 9645247 (Version 1)
Quarter: 2013Q4

REPORT INFORMATION
  Report Type: Spontaneous
  Country: JP (occurrence: JP)
  Receive Date: 20131025
  Receipt Date: 20131025
  Transmission Date: 20140711
  Serious: Yes (Death)
  Sender: FDA-Public Use
  Company Number: JP-ROCHE-1291816

PATIENT
  Age: 27 Year
  Sex: Female

DRUGS (4)
  1. CELLCEPT [Suspect]
     Indication: ORGAN TRANSPLANT
     Dosage: DOSAGE IS UNCERTAIN.
     Route: 048
  2. TACROLIMUS HYDRATE [Concomitant]
     Dosage: DOSAGE IS UNCERTAIN.
     Route: 065
  3. BASILIXIMAB [Concomitant]
     Dosage: DOSAGE IS UNCERTAIN.
     Route: 065
  4. PREDNISOLONE [Concomitant]
     Dosage: DOSAGE IS UNCERTAIN.
     Route: 065

REACTIONS (1)
  - Post transplant lymphoproliferative disorder [Fatal]
